FAERS Safety Report 4875964-2 (Version None)
Quarter: 2005Q4

REPORT INFORMATION
  Report Type: 
  Country: None (occurrence: None)
  Receive Date: 20051206
  Receipt Date: 20051004
  Transmission Date: 20060501
  Serious: No
  Sender: FDA-Public Use
  Company Number: US_0510122757

PATIENT
  Age: 72 Year
  Sex: Female

DRUGS (2)
  1. CYMBALTA [Suspect]
     Indication: DEPRESSION
     Dosage: 20 MG
     Dates: start: 20050701
  2. INSULIN [Concomitant]

REACTIONS (1)
  - BLOOD GLUCOSE DECREASED [None]
